FAERS Safety Report 9298034 (Version 8)
Quarter: 2014Q1

REPORT INFORMATION
  Report Type: Report from Study
  Country: US (occurrence: US)
  Receive Date: 20130520
  Receipt Date: 20140307
  Transmission Date: 20141002
  Serious: Yes (Hospitalization)
  Sender: FDA-Public Use
  Company Number: US-ROCHE-1224016

PATIENT
  Age: 61 Year
  Sex: Female

DRUGS (9)
  1. RIBAVIRIN [Suspect]
     Indication: HEPATITIS C
     Route: 048
     Dates: start: 20130404, end: 20130415
  2. RITONAVIR [Suspect]
     Indication: HEPATITIS C
     Dosage: 150MG/100MG/25MG
     Route: 048
     Dates: start: 20130404, end: 20130415
  3. ABT-333 [Suspect]
     Indication: HEPATITIS C
     Route: 048
     Dates: start: 20130404, end: 20130415
  4. NIFEDIAC [Concomitant]
     Indication: HYPERTENSION
     Route: 048
     Dates: start: 2008, end: 20130415
  5. LIPITOR [Concomitant]
     Indication: HYPERCHOLESTEROLAEMIA
     Route: 048
     Dates: start: 2001, end: 20130321
  6. RALOXIFENE [Concomitant]
     Indication: PROPHYLAXIS
     Route: 048
     Dates: start: 2008, end: 20130416
  7. OMEPRAZOLE [Concomitant]
     Indication: DYSPEPSIA
     Route: 048
     Dates: start: 2000, end: 20130416
  8. PROAIR (UNITED STATES) [Concomitant]
     Indication: SEASONAL ALLERGY
     Dosage: PUFF
     Route: 055
     Dates: start: 2011
  9. ERGOCALCIFEROL [Concomitant]
     Route: 048
     Dates: start: 20130321

REACTIONS (3)
  - Respiratory distress [Recovered/Resolved]
  - Rhinovirus infection [Recovered/Resolved]
  - Chronic obstructive pulmonary disease [Recovered/Resolved]
